FAERS Safety Report 9536467 (Version 1)
Quarter: 2013Q1

REPORT INFORMATION
  Report Type: Spontaneous
  Country: US (occurrence: None)
  Receive Date: 20130326
  Receipt Date: 20130326
  Transmission Date: 20140127
  Serious: Yes (Other)
  Sender: FDA-Public Use
  Company Number: 1427542

PATIENT
  Age: 62 Year
  Sex: Male
  Weight: 84.8 kg

DRUGS (1)
  1. CIPRO IN 5% DEXTROSE [Suspect]
     Dates: start: 20120828, end: 20120828

REACTIONS (1)
  - Injection site streaking [None]
